FAERS Safety Report 6791268-5 (Version None)
Quarter: 2010Q2

REPORT INFORMATION
  Report Type: 
  Country: None (occurrence: None)
  Receive Date: 20100624
  Receipt Date: 20100615
  Transmission Date: 20101027
  Serious: Yes (Death)
  Sender: FDA-Public Use
  Company Number: HQWYE769713FEB06

PATIENT
  Sex: Female
  Weight: 59.02 kg

DRUGS (3)
  1. EFFEXOR XR [Suspect]
     Indication: MAJOR DEPRESSION
     Dates: start: 20040217
  2. ELAVIL [Concomitant]
     Indication: DEPRESSION
  3. ELAVIL [Concomitant]
     Indication: INSOMNIA

REACTIONS (4)
  - CARBON MONOXIDE POISONING [None]
  - COMPLETED SUICIDE [None]
  - CONDITION AGGRAVATED [None]
  - SUICIDAL IDEATION [None]
